FAERS Safety Report 24704579 (Version 1)
Quarter: 2024Q4

REPORT INFORMATION
  Report Type: Spontaneous
  Country: PA (occurrence: PA)
  Receive Date: 20241206
  Receipt Date: 20241206
  Transmission Date: 20250115
  Serious: Yes (Other)
  Sender: SANDOZ
  Company Number: PA-002147023-NVSC2023PA069256

PATIENT
  Sex: Female

DRUGS (2)
  1. ANASTROZOLE [Suspect]
     Active Substance: ANASTROZOLE
     Indication: Product used for unknown indication
     Dosage: UNK
     Route: 065
  2. KISQALI [Suspect]
     Active Substance: RIBOCICLIB
     Indication: Breast cancer metastatic
     Dosage: 600 MG, QD (3 TABLETS)
     Route: 048
     Dates: start: 20230315, end: 202411

REACTIONS (5)
  - Metastases to bone [Unknown]
  - Limb discomfort [Unknown]
  - Breast disorder [Unknown]
  - Breast inflammation [Unknown]
  - Inflammation [Recovering/Resolving]
